FAERS Safety Report 9369784 (Version 1)
Quarter: 2013Q2

REPORT INFORMATION
  Report Type: Spontaneous
  Country: GR (occurrence: GR)
  Receive Date: 20130626
  Receipt Date: 20130626
  Transmission Date: 20140414
  Serious: Yes (Hospitalization)
  Sender: FDA-Public Use
  Company Number: GR-SANOFI-AVENTIS-2013SA060533

PATIENT
  Age: 76 Year
  Sex: Female

DRUGS (2)
  1. ISONIAZID [Suspect]
     Indication: LATENT TUBERCULOSIS
     Route: 065
  2. GLIMEPIRIDE [Interacting]
     Indication: TYPE 2 DIABETES MELLITUS
     Route: 065

REACTIONS (6)
  - Hyperinsulinaemia [Recovered/Resolved]
  - Drug interaction [Unknown]
  - Hypoglycaemia [Recovered/Resolved]
  - Hyperhidrosis [Recovered/Resolved]
  - Palpitations [Recovered/Resolved]
  - Lethargy [Recovered/Resolved]
